FAERS Safety Report 23472680 (Version 1)
Quarter: 2024Q1

REPORT INFORMATION
  Report Type: Report from Study
  Country: PT (occurrence: PT)
  Receive Date: 20240202
  Receipt Date: 20240202
  Transmission Date: 20240410
  Serious: Yes (Other)
  Sender: FDA-Public Use
  Company Number: PT-ABBVIE-5599103

PATIENT
  Age: 75 Year
  Sex: Female

DRUGS (7)
  1. CARBIDOPA\LEVODOPA [Suspect]
     Active Substance: CARBIDOPA\LEVODOPA
     Indication: Parkinson^s disease
     Dosage: 20 MG + 5 MG?DRUG STOP DATE IN 2023.?FREQUENCY TEXT: MORN:11CC;MAIN:2.7CC/H;EXTRA:1.5CC
     Route: 050
     Dates: start: 20230622
  2. CARBIDOPA\LEVODOPA [Suspect]
     Active Substance: CARBIDOPA\LEVODOPA
     Dosage: 20 MG + 5 MG?FREQUENCY TEXT: MORN:8CC;MAIN:2.2CC/H;EXTRA:1CC
     Route: 050
     Dates: start: 2023
  3. PANTOPRAZOLE [Concomitant]
     Active Substance: PANTOPRAZOLE
     Indication: Product used for unknown indication
     Dosage: 1 TABLET?FORM STRENGTH: 10 MG?FREQUENCY TEXT: AT FASTING
  4. QUETIAPINE [Concomitant]
     Active Substance: QUETIAPINE
     Indication: Product used for unknown indication
     Dosage: FORM STRENGTH: 0.5 MILLIGRAMS?FREQUENCY TEXT: AT NIGHT?START DATE TEXT: BEFORE DUODOPA
  5. EXELON [Concomitant]
     Active Substance: RIVASTIGMINE TARTRATE
     Indication: Product used for unknown indication
     Dosage: FORM STRENGTH: 9.5 MILLIGRAMS?START DATE TEXT: BEFORE DUODOPA?FREQUENCY TEXT: 1 PATCH DAILY
  6. VENLAFAXINA MEPHA [Concomitant]
     Indication: Product used for unknown indication
     Dosage: FORM STRENGTH: 37.5 MG?START DATE TEXT: BEFORE DUODOPA
  7. FLUVASTATIN [Concomitant]
     Active Substance: FLUVASTATIN SODIUM
     Indication: Hypercholesterolaemia
     Dosage: 1 TABLET?FREQUENCY TEXT: AT DINNER?START DATE TEXT: BEFORE DUODOPA??FORM STRENGTH WAS 20 MILLIGRAMS

REACTIONS (6)
  - Respiratory tract infection [Recovered/Resolved]
  - Pyrexia [Recovered/Resolved]
  - Hallucination [Recovered/Resolved]
  - Disorientation [Recovered/Resolved]
  - Cough [Recovering/Resolving]
  - Productive cough [Recovering/Resolving]

NARRATIVE: CASE EVENT DATE: 20240116
